FAERS Safety Report 20385331 (Version 1)
Quarter: 2022Q1

REPORT INFORMATION
  Report Type: Spontaneous
  Country: US (occurrence: US)
  Receive Date: 20220127
  Receipt Date: 20220127
  Transmission Date: 20220424
  Serious: No
  Sender: FDA-Public Use
  Company Number: US-ALLERGAN-2110171US

PATIENT
  Sex: Female

DRUGS (1)
  1. BOTOX COSMETIC [Suspect]
     Active Substance: ONABOTULINUMTOXINA
     Indication: Skin wrinkling
     Dosage: 19 UNITS, SINGLE
     Route: 065
     Dates: start: 20200920, end: 20200920

REACTIONS (2)
  - Hypoaesthesia eye [Unknown]
  - Neuralgia [Unknown]
